FAERS Safety Report 11269610 (Version 1)
Quarter: 2015Q3

REPORT INFORMATION
  Report Type: Spontaneous
  Country: PT (occurrence: None)
  Receive Date: 20150710
  Receipt Date: 20150710
  Transmission Date: 20151125
  Serious: Yes (Other)
  Sender: FDA-Public Use
  Company Number: PT-H14001-15-01009

PATIENT
  Age: 80 Year
  Sex: Male

DRUGS (1)
  1. AMIODARONE (AMIODARONE) (UNKNOWN) (AMIODARONE) [Suspect]
     Active Substance: AMIODARONE
     Indication: PRODUCT USED FOR UNKNOWN INDICATION

REACTIONS (5)
  - Anaemia macrocytic [None]
  - Pancytopenia [None]
  - Hypothyroidism [None]
  - Pneumonia [None]
  - Vitamin B12 decreased [None]
